FAERS Safety Report 20331149 (Version 1)
Quarter: 2022Q1

REPORT INFORMATION
  Report Type: Spontaneous
  Country: CA (occurrence: None)
  Receive Date: 20220113
  Receipt Date: 20220113
  Transmission Date: 20220423
  Serious: Yes (Other)
  Sender: FDA-Public Use
  Company Number: CA-ROCHE-2998023

PATIENT
  Sex: Female

DRUGS (44)
  1. RITUXIMAB [Suspect]
     Active Substance: RITUXIMAB
     Indication: Rheumatoid arthritis
     Route: 041
  2. RITUXIMAB [Suspect]
     Active Substance: RITUXIMAB
     Indication: Immunoglobulin G4 related disease
  3. ACETAMINOPHEN [Concomitant]
     Active Substance: ACETAMINOPHEN
     Indication: Premedication
     Route: 048
  4. ACYCLOVIR [Concomitant]
     Active Substance: ACYCLOVIR
  5. ADVAIR HFA [Concomitant]
     Active Substance: FLUTICASONE PROPIONATE\SALMETEROL XINAFOATE
  6. AERIUS [Concomitant]
     Route: 048
  7. AERIUS [Concomitant]
     Route: 048
  8. AERIUS [Concomitant]
     Route: 048
  9. ALTEPLASE [Concomitant]
     Active Substance: ALTEPLASE
  10. ATORVASTATIN [Concomitant]
     Active Substance: ATORVASTATIN
  11. BENADRYL [Concomitant]
     Active Substance: DIPHENHYDRAMINE HYDROCHLORIDE
     Route: 048
  12. BENADRYL [Concomitant]
     Active Substance: DIPHENHYDRAMINE HYDROCHLORIDE
     Route: 042
  13. BENADRYL [Concomitant]
     Active Substance: DIPHENHYDRAMINE HYDROCHLORIDE
     Route: 042
  14. BISACODYL [Concomitant]
     Active Substance: BISACODYL
  15. CARBOXYMETHYLCELLULOSE [Concomitant]
     Active Substance: CARBOXYMETHYLCELLULOSE
  16. COLACE [Concomitant]
     Active Substance: DOCUSATE SODIUM
  17. DALTEPARIN SODIUM [Concomitant]
     Active Substance: DALTEPARIN SODIUM
  18. DIMENHYDRINATE [Concomitant]
     Active Substance: DIMENHYDRINATE
  19. DIPHENHYDRAMINE [Concomitant]
     Active Substance: DIPHENHYDRAMINE
     Indication: Premedication
     Route: 042
  20. ERYTHROMYCIN [Concomitant]
     Active Substance: ERYTHROMYCIN
  21. ESTRADIOL [Concomitant]
     Active Substance: ESTRADIOL
  22. FAMOTIDINE [Concomitant]
     Active Substance: FAMOTIDINE
     Indication: Premedication
     Route: 042
  23. FUROSEMIDE [Concomitant]
     Active Substance: FUROSEMIDE
  24. GRAVOL [Concomitant]
     Active Substance: DIMENHYDRINATE
     Route: 042
  25. GRAVOL [Concomitant]
     Active Substance: DIMENHYDRINATE
     Route: 042
  26. GRAVOL [Concomitant]
     Active Substance: DIMENHYDRINATE
     Route: 042
  27. HYDROMORPHONE [Concomitant]
     Active Substance: HYDROMORPHONE
  28. LACTULOSE [Concomitant]
     Active Substance: LACTULOSE
     Route: 048
  29. LEVOFLOXACIN [Concomitant]
     Active Substance: LEVOFLOXACIN
  30. LORAZEPAM [Concomitant]
     Active Substance: LORAZEPAM
  31. POLYETHYLENE GLYCOL 400\PROPYLENE GLYCOL [Concomitant]
     Active Substance: POLYETHYLENE GLYCOL 400\PROPYLENE GLYCOL
  32. METHYLPREDNISOLONE [Concomitant]
     Active Substance: METHYLPREDNISOLONE
     Indication: Premedication
     Route: 042
  33. METOCLOPRAMIDE HYDROCHLORIDE [Concomitant]
     Active Substance: METOCLOPRAMIDE HYDROCHLORIDE
     Indication: Premedication
     Route: 042
  34. METRONIDAZOLE [Concomitant]
     Active Substance: METRONIDAZOLE
  35. MIRTAZAPINE [Concomitant]
     Active Substance: MIRTAZAPINE
  36. MOMETASONE [Concomitant]
     Active Substance: MOMETASONE
  37. MONTELUKAST [Concomitant]
     Active Substance: MONTELUKAST SODIUM
  38. NALOXONE [Concomitant]
     Active Substance: NALOXONE
  39. ONDANSETRON [Concomitant]
     Active Substance: ONDANSETRON
     Route: 048
  40. PANTOPRAZOLE [Concomitant]
     Active Substance: PANTOPRAZOLE
  41. PREDNISONE [Concomitant]
     Active Substance: PREDNISONE
  42. ALBUTEROL [Concomitant]
     Active Substance: ALBUTEROL
  43. SPIRONOLACTONE [Concomitant]
     Active Substance: SPIRONOLACTONE
  44. VALSARTAN [Concomitant]
     Active Substance: VALSARTAN

REACTIONS (6)
  - Flushing [Recovered/Resolved]
  - Infusion related reaction [Recovered/Resolved]
  - Nausea [Recovered/Resolved]
  - Pruritus [Recovered/Resolved]
  - Weight increased [Recovered/Resolved]
  - Off label use [Unknown]
